FAERS Safety Report 14595446 (Version 1)
Quarter: 2018Q1

REPORT INFORMATION
  Report Type: Spontaneous
  Country: DE (occurrence: DE)
  Receive Date: 20180302
  Receipt Date: 20180302
  Transmission Date: 20180509
  Serious: Yes (Hospitalization, Other)
  Sender: FDA-Public Use
  Company Number: DE-TEVA-2018-DE-848301

PATIENT
  Age: 50 Year
  Sex: Male

DRUGS (3)
  1. ATORVASTATIN RATIOPHARM 40 MG [Suspect]
     Active Substance: ATORVASTATIN
     Indication: MYOCARDIAL INFARCTION
     Dosage: 40 MILLIGRAM DAILY;
     Dates: start: 201706, end: 201801
  2. ASS 100 [Concomitant]
     Active Substance: ASPIRIN
     Indication: MYOCARDIAL INFARCTION
     Dosage: 100 MILLIGRAM DAILY;
     Dates: start: 201706
  3. EFIENT 10 MG [Concomitant]
     Indication: MYOCARDIAL INFARCTION
     Dosage: 10 MILLIGRAM DAILY;
     Dates: start: 201706, end: 201712

REACTIONS (19)
  - Pruritus [Unknown]
  - Myalgia [Unknown]
  - Connective tissue disorder [Not Recovered/Not Resolved]
  - Muscular weakness [Not Recovered/Not Resolved]
  - Fatigue [Unknown]
  - Muscle twitching [Recovering/Resolving]
  - Oedema peripheral [Unknown]
  - Nervous system disorder [Unknown]
  - Myositis [Unknown]
  - Muscle atrophy [Unknown]
  - Paraesthesia [Unknown]
  - Back pain [Unknown]
  - Rash vesicular [Unknown]
  - Arthritis [Unknown]
  - Hypoaesthesia [Unknown]
  - Rhabdomyolysis [Unknown]
  - Hyperaesthesia [Unknown]
  - Arthralgia [Unknown]
  - Hypersensitivity [Unknown]

NARRATIVE: CASE EVENT DATE: 201708
